FAERS Safety Report 8082076-6 (Version None)
Quarter: 2012Q1

REPORT INFORMATION
  Report Type: 
  Country: None (occurrence: None)
  Receive Date: 20120127
  Receipt Date: 20110225
  Transmission Date: 20120608
  Serious: No
  Sender: FDA-Public Use
  Company Number: US-ABBOTT-11P-163-0707818-00

PATIENT
  Age: 66 Year
  Sex: Male

DRUGS (2)
  1. OTHER MEDICATIONS [Concomitant]
     Indication: PRODUCT USED FOR UNKNOWN INDICATION
  2. HUMIRA [Suspect]
     Indication: PSORIASIS
     Dates: start: 20100601, end: 20101215

REACTIONS (2)
  - PNEUMONIA [None]
  - SINUSITIS [None]
